FAERS Safety Report 23857773 (Version 1)
Quarter: 2024Q2

REPORT INFORMATION
  Report Type: Spontaneous
  Country: CN (occurrence: CN)
  Receive Date: 20240515
  Receipt Date: 20240515
  Transmission Date: 20240716
  Serious: Yes (Life-Threatening, Hospitalization)
  Sender: FDA-Public Use
  Company Number: CN-JNJFOC-20240533451

PATIENT
  Age: 60 Year
  Sex: Male
  Weight: 64 kg

DRUGS (1)
  1. DARZALEX [Suspect]
     Active Substance: DARATUMUMAB
     Indication: Plasma cell myeloma
     Route: 042
     Dates: start: 20240428, end: 20240428

REACTIONS (6)
  - Blood pressure increased [Recovering/Resolving]
  - Chest discomfort [Recovering/Resolving]
  - Tachypnoea [Recovering/Resolving]
  - Chills [Recovering/Resolving]
  - Dyspnoea [Recovering/Resolving]
  - Infusion related reaction [Recovering/Resolving]

NARRATIVE: CASE EVENT DATE: 20240428
